FAERS Safety Report 23471152 (Version 1)
Quarter: 2024Q1

REPORT INFORMATION
  Report Type: Spontaneous
  Country: None (occurrence: CN)
  Receive Date: 20240202
  Receipt Date: 20240202
  Transmission Date: 20240410
  Serious: Yes (Hospitalization)
  Sender: FDA-Public Use
  Company Number: CN-Jiangsu Hengrui Medicine Co., Ltd.-2152511

PATIENT
  Age: 70 Year
  Sex: Male
  Weight: 55 kg

DRUGS (2)
  1. OXALIPLATIN [Suspect]
     Active Substance: OXALIPLATIN
     Indication: Gastric cancer
     Route: 041
     Dates: start: 20231227
  2. CAPECITABINE [Concomitant]
     Active Substance: CAPECITABINE
     Route: 048
     Dates: start: 20231227, end: 20231227

REACTIONS (1)
  - Dermatitis exfoliative [Recovered/Resolved]

NARRATIVE: CASE EVENT DATE: 20240109
